FAERS Safety Report 8153168-8 (Version None)
Quarter: 2012Q1

REPORT INFORMATION
  Report Type: 
  Country: None (occurrence: None)
  Receive Date: 20120221
  Receipt Date: 20120213
  Transmission Date: 20120608
  Serious: Yes (Hospitalization)
  Sender: FDA-Public Use
  Company Number: KR-SANOFI-AVENTIS-2012SA009630

PATIENT
  Age: 60 Year
  Sex: Male
  Weight: 59.7 kg

DRUGS (6)
  1. NIZATIDINE [Concomitant]
     Dates: start: 20060101
  2. ALFUZOSIN HYDROCHLORIDE [Suspect]
     Indication: BENIGN PROSTATIC HYPERPLASIA
     Route: 048
     Dates: start: 20111121, end: 20120209
  3. TIROPRAMIDE [Concomitant]
     Dates: start: 20060101
  4. MOSAPRIDE [Concomitant]
     Dates: start: 20060101
  5. GENTIANA LUTEA AND ACHILLEA MILLEFOLIUM AND CNICUS BENEDICTUS AND ARTE [Concomitant]
     Dates: start: 20060101
  6. ALVERINE CITRATE [Concomitant]
     Route: 058
     Dates: start: 20060101

REACTIONS (2)
  - RIB FRACTURE [None]
  - FALL [None]
